FAERS Safety Report 15559168 (Version 1)
Quarter: 2018Q4

REPORT INFORMATION
  Report Type: Spontaneous
  Country: DE (occurrence: DE)
  Receive Date: 20181029
  Receipt Date: 20181029
  Transmission Date: 20190205
  Serious: Yes (Other)
  Sender: FDA-Public Use
  Company Number: DE-ABBVIE-18S-062-2531736-00

PATIENT
  Age: 42 Year
  Sex: Male
  Weight: 62 kg

DRUGS (10)
  1. SANDIMMUN [Interacting]
     Active Substance: CYCLOSPORINE
     Indication: LIVER TRANSPLANT
     Dosage: 15 MG, QD
     Route: 048
     Dates: start: 20020411
  2. SANDIMMUN [Interacting]
     Active Substance: CYCLOSPORINE
     Dosage: 10 MG, QD
     Route: 048
     Dates: end: 20020410
  3. SANDIMMUN [Interacting]
     Active Substance: CYCLOSPORINE
     Dosage: 650MG/DAY
     Route: 042
     Dates: start: 20020223
  4. SANDIMMUN [Interacting]
     Active Substance: CYCLOSPORINE
     Dosage: 7 MG, BID
     Route: 048
  5. VIREAD [Concomitant]
     Active Substance: TENOFOVIR DISOPROXIL FUMARATE
     Indication: HIV TEST POSITIVE
     Dosage: 300 MG, QD
     Route: 048
     Dates: start: 20030223, end: 20030923
  6. SAQUINAVIR [Concomitant]
     Active Substance: SAQUINAVIR
     Indication: PRODUCT USED FOR UNKNOWN INDICATION
     Dosage: 1000 MG, BID
     Dates: start: 200311
  7. EPIVIR [Concomitant]
     Active Substance: LAMIVUDINE
     Indication: HIV TEST POSITIVE
     Dosage: 300 MG, QD
     Route: 048
     Dates: start: 20020223
  8. KALETRA [Interacting]
     Active Substance: LOPINAVIR\RITONAVIR
     Dosage: RITONAVIR 100 MG, BID
     Route: 048
     Dates: start: 20020223
  9. KALETRA [Suspect]
     Active Substance: LOPINAVIR\RITONAVIR
     Indication: HIV TEST POSITIVE
     Dosage: LOPINAVIR 400 MG, BID
     Route: 048
     Dates: start: 20020223
  10. SANDIMMUN [Interacting]
     Active Substance: CYCLOSPORINE
     Dosage: 15 MG, QD
     Route: 048
     Dates: start: 20020223

REACTIONS (3)
  - Drug level increased [Unknown]
  - Drug level changed [Unknown]
  - Drug interaction [Unknown]

NARRATIVE: CASE EVENT DATE: 20020223
